FAERS Safety Report 15565358 (Version 3)
Quarter: 2019Q3

REPORT INFORMATION
  Report Type: Report from Study
  Country: ZA (occurrence: ZA)
  Receive Date: 20181030
  Receipt Date: 20190709
  Transmission Date: 20191004
  Serious: Yes (Death, Hospitalization, Disabling)
  Sender: FDA-Public Use
  Company Number: PHHY2018ZA140499

PATIENT
  Age: 86 Year
  Sex: Male

DRUGS (1)
  1. CO-TAREG [Suspect]
     Active Substance: HYDROCHLOROTHIAZIDE\VALSARTAN
     Indication: HYPERTENSION
     Dosage: 1 DF (HYDROCHLOROTHIAZIDE 12.5 MG, VALSARTAN 160 MG), UNK
     Route: 048

REACTIONS (5)
  - Cerebrovascular accident [Unknown]
  - Death [Fatal]
  - Furuncle [Unknown]
  - Blindness [Unknown]
  - Gait inability [Unknown]

NARRATIVE: CASE EVENT DATE: 20160615
